FAERS Safety Report 25526329 (Version 1)
Quarter: 2025Q3

REPORT INFORMATION
  Report Type: Spontaneous
  Country: EU (occurrence: EU)
  Receive Date: 20250707
  Receipt Date: 20250707
  Transmission Date: 20251020
  Serious: Yes (Other)
  Sender: TEVA
  Company Number: None

PATIENT
  Age: 67 Year
  Sex: Female

DRUGS (5)
  1. ALENDRONIC ACID [Suspect]
     Active Substance: ALENDRONIC ACID
     Indication: Osteoporosis
     Dosage: WEEKLY ALENDRONIC ACID CINFAMED EFG TABLETS, 4 TABLETS
     Route: 048
     Dates: start: 20250213, end: 20250531
  2. FAMOTIDINA NORMON [Concomitant]
     Indication: Product used for unknown indication
     Dosage: 28 TABLETS
     Route: 048
     Dates: start: 20220822
  3. ASPIRIN [Concomitant]
     Active Substance: ASPIRIN
     Indication: Product used for unknown indication
     Dosage: EFG TABLETS, 30 TABLETS (PVC-ALUMINUM)
     Route: 048
     Dates: start: 20220822
  4. MANIDIPINO CINFA [Concomitant]
     Indication: Product used for unknown indication
     Dosage: EFG TABLETS, 28 TABLETS
     Route: 048
     Dates: start: 20220919
  5. Indapamide retard [Concomitant]
     Indication: Product used for unknown indication
     Dosage: INDAPAMIDE RETARD CINFA EXTENDED-RELEASE TABLETS EFG, 30 TABLETS
     Route: 048
     Dates: start: 20230130

REACTIONS (3)
  - Myalgia [Recovered/Resolved]
  - Paraesthesia [Recovered/Resolved]
  - Headache [Recovered/Resolved]

NARRATIVE: CASE EVENT DATE: 20250523
